FAERS Safety Report 8359232-2 (Version None)
Quarter: 2012Q2

REPORT INFORMATION
  Report Type: 
  Country: None (occurrence: None)
  Receive Date: 20120514
  Receipt Date: 20120514
  Transmission Date: 20120825
  Serious: Yes (Disabling)
  Sender: FDA-Public Use
  Company Number: None

PATIENT
  Age: 19 Year
  Weight: 90.7194 kg

DRUGS (1)
  1. PROPECIA [Suspect]
     Indication: ANDROGENETIC ALOPECIA
     Dosage: 1MG EVERY DAY PO
     Route: 048
     Dates: start: 20050101, end: 20060101

REACTIONS (6)
  - LIBIDO DECREASED [None]
  - FATIGUE [None]
  - SCROTAL PAIN [None]
  - ERECTILE DYSFUNCTION [None]
  - HYPOAESTHESIA [None]
  - DARK CIRCLES UNDER EYES [None]
